FAERS Safety Report 9583920 (Version 1)
Quarter: 2013Q4

REPORT INFORMATION
  Report Type: Spontaneous
  Country: US (occurrence: US)
  Receive Date: 20131002
  Receipt Date: 20131002
  Transmission Date: 20140711
  Serious: No
  Sender: FDA-Public Use
  Company Number: US-AMGEN-USASP2013050073

PATIENT
  Age: 51 Year
  Sex: Female

DRUGS (2)
  1. ENBREL [Suspect]
     Indication: RHEUMATOID ARTHRITIS
     Dosage: 50 MG, QWK
     Route: 065
     Dates: start: 20130403
  2. METHOTREXATE [Concomitant]
     Dosage: 15 MG, QWK, OFF AND ON SINCE UNK/UNK/2010
     Route: 048
     Dates: start: 2010

REACTIONS (2)
  - Arthralgia [Not Recovered/Not Resolved]
  - Mouth ulceration [Not Recovered/Not Resolved]
